FAERS Safety Report 6617070-2 (Version None)
Quarter: 2010Q1

REPORT INFORMATION
  Report Type: 
  Country: None (occurrence: None)
  Receive Date: 20100307
  Receipt Date: 20100222
  Transmission Date: 20100710
  Serious: Yes (Death)
  Sender: FDA-Public Use
  Company Number: US-ELI_LILLY_AND_COMPANY-US201002006394

PATIENT
  Age: 43 Year
  Sex: Male

DRUGS (2)
  1. ZYPREXA [Suspect]
  2. FLUOXETINE HYDROCHLORIDE [Concomitant]

REACTIONS (1)
  - COMPLETED SUICIDE [None]
